FAERS Safety Report 5132329-6 (Version None)
Quarter: 2006Q4

REPORT INFORMATION
  Report Type: 
  Country: None (occurrence: None)
  Receive Date: 20061019
  Receipt Date: 20061019
  Transmission Date: 20070319
  Serious: No
  Sender: FDA-Public Use
  Company Number: None

PATIENT
  Age: 79 Year
  Sex: Male
  Weight: 89.3 kg

DRUGS (1)
  1. WARFARIN SODIUM [Suspect]
     Indication: AORTIC VALVE REPLACEMENT
     Dosage: 5 MG PO -FR-SA-SU 6 MG PO MO-THUR
     Route: 048
     Dates: start: 20051214, end: 20060530

REACTIONS (1)
  - INTERNATIONAL NORMALISED RATIO INCREASED [None]
